FAERS Safety Report 19883521 (Version 1)
Quarter: 2021Q3

REPORT INFORMATION
  Report Type: Spontaneous
  Country: FR (occurrence: FR)
  Receive Date: 20210927
  Receipt Date: 20210927
  Transmission Date: 20211014
  Serious: Yes (Other)
  Sender: FDA-Public Use
  Company Number: FR-SUN PHARMACEUTICAL INDUSTRIES LTD-2021R1-312008

PATIENT
  Age: 58 Year
  Sex: Male

DRUGS (2)
  1. TETRABENAZINE. [Suspect]
     Active Substance: TETRABENAZINE
     Dosage: 100 MILLIGRAM, DAILY
     Route: 065
  2. TETRABENAZINE. [Suspect]
     Active Substance: TETRABENAZINE
     Indication: CHOREA
     Dosage: 12.5 MILLIGRAM, DAILY
     Route: 065
     Dates: start: 20191024

REACTIONS (3)
  - Thrombocytopenia [Unknown]
  - Sepsis [Unknown]
  - Agranulocytosis [Unknown]
